FAERS Safety Report 13443027 (Version 33)
Quarter: 2021Q4

REPORT INFORMATION
  Report Type: Spontaneous
  Country: US (occurrence: US)
  Receive Date: 20170414
  Receipt Date: 20211213
  Transmission Date: 20220304
  Serious: Yes (Other)
  Sender: FDA-Public Use
  Company Number: US-PFIZER INC-2016508384

PATIENT
  Age: 48 Year
  Sex: Female

DRUGS (21)
  1. LYRICA [Suspect]
     Active Substance: PREGABALIN
     Indication: Spinal cord injury
     Dosage: 200 MG, 4X/DAY
     Route: 048
  2. LYRICA [Suspect]
     Active Substance: PREGABALIN
     Dosage: 300 MG, 2X/DAY
     Route: 048
     Dates: start: 20160712
  3. LYRICA [Suspect]
     Active Substance: PREGABALIN
     Dosage: 200 MG, 1X/DAY
     Route: 048
     Dates: start: 20160712
  4. LYRICA [Suspect]
     Active Substance: PREGABALIN
     Dosage: 400 MG, 2X/DAY
     Route: 048
     Dates: start: 20200518, end: 2020
  5. LYRICA [Suspect]
     Active Substance: PREGABALIN
     Dosage: 1 DF, 4X/DAY
     Route: 048
     Dates: start: 2020
  6. LYRICA [Suspect]
     Active Substance: PREGABALIN
     Dosage: UNK
  7. BUPROPION HYDROCHLORIDE [Concomitant]
     Active Substance: BUPROPION HYDROCHLORIDE
     Dosage: 300 MG, 1X/DAY [IN THE MORNING]
     Route: 048
     Dates: start: 20160620
  8. CARBAMAZEPINE [Concomitant]
     Active Substance: CARBAMAZEPINE
     Dosage: 400 MG, 1X/DAY (200 MG TABLET 2 QHS)
     Route: 048
     Dates: start: 20160425
  9. CYCLOBENZAPRINE HYDROCHLORIDE [Concomitant]
     Active Substance: CYCLOBENZAPRINE HYDROCHLORIDE
     Dosage: UNK, AS NEEDED (10 MG TABLET 1/2-1 TID PRN)
     Route: 048
  10. LAMOTRIGINE [Concomitant]
     Active Substance: LAMOTRIGINE
     Dosage: 400 MG, 1X/DAY [QHS]
     Route: 048
  11. FLOMAX [Concomitant]
     Active Substance: TAMSULOSIN HYDROCHLORIDE
     Dosage: 0.4 MG
     Route: 048
  12. ACETAMINOPHEN\HYDROCODONE [Concomitant]
     Active Substance: ACETAMINOPHEN\HYDROCODONE
     Dosage: 1 DF
     Route: 048
  13. SYNTHROID [Concomitant]
     Active Substance: LEVOTHYROXINE SODIUM
     Dosage: 100 UG, 1X/DAY  [1 QAM AC]
     Route: 048
  14. NITROFURANTOIN MACROCRYSTALS [Concomitant]
     Active Substance: NITROFURANTOIN
     Dosage: 100 MG, 1X/DAY
     Route: 048
  15. PROMETHAZINE HYDROCHLORIDE [Concomitant]
     Active Substance: PROMETHAZINE HYDROCHLORIDE
     Dosage: 1/2-1, 1X/DAY
     Route: 048
     Dates: start: 20161006
  16. PROPRANOLOL HYDROCHLORIDE [Concomitant]
     Active Substance: PROPRANOLOL HYDROCHLORIDE
     Dosage: 40 MG, 2X/DAY
     Route: 048
     Dates: start: 20160510
  17. RIZATRIPTAN BENZOATE [Concomitant]
     Active Substance: RIZATRIPTAN BENZOATE
     Indication: Headache
     Dosage: 10 MG, AS NEEDED [REPEAT EVERY 2 HOURS AS NEEDED, MAXIMUM 3 TABLETS IN 24 HOURS]
     Route: 048
     Dates: start: 20160510
  18. TOPAMAX [Concomitant]
     Active Substance: TOPIRAMATE
     Dosage: 200 MG, 2X/DAY
     Route: 048
     Dates: start: 20160601
  19. TRAMADOL HCL [Concomitant]
     Active Substance: TRAMADOL HYDROCHLORIDE
     Indication: Pain
     Dosage: UNK, 4X/DAY (50 MG TABLET, 1/2- 2 QID PRN)
     Route: 048
     Dates: start: 20160523
  20. ZALEPLON [Concomitant]
     Active Substance: ZALEPLON
     Dosage: UNK, AS NEEDED (10 MG TAKE 1 TO 2 CAPSULES AT BEDTIME
     Dates: start: 20160829
  21. ZOLPIDEM TARTRATE [Concomitant]
     Active Substance: ZOLPIDEM TARTRATE
     Dosage: 10 MG, 1X/DAY (QHS PRN)
     Route: 048
     Dates: start: 20160329

REACTIONS (29)
  - Loss of consciousness [Unknown]
  - Neuropathy peripheral [Unknown]
  - Drug dependence [Not Recovered/Not Resolved]
  - Foot fracture [Unknown]
  - Neuralgia [Unknown]
  - Panic attack [Not Recovered/Not Resolved]
  - Anxiety [Not Recovered/Not Resolved]
  - Musculoskeletal discomfort [Unknown]
  - Urinary tract infection [Unknown]
  - Malaise [Unknown]
  - Gait disturbance [Not Recovered/Not Resolved]
  - Screaming [Not Recovered/Not Resolved]
  - Tympanic membrane perforation [Unknown]
  - Burning sensation [Unknown]
  - Pain [Unknown]
  - Memory impairment [Not Recovered/Not Resolved]
  - Anger [Unknown]
  - Nervousness [Unknown]
  - Back disorder [Unknown]
  - Depression [Unknown]
  - Crying [Unknown]
  - Dysgraphia [Unknown]
  - Limb discomfort [Unknown]
  - Stress [Unknown]
  - Hypoacusis [Unknown]
  - Prescribed overdose [Unknown]
  - Intentional product use issue [Unknown]
  - Product dispensing error [Unknown]
  - Bedridden [Unknown]
